FAERS Safety Report 4981820-1 (Version None)
Quarter: 2006Q2

REPORT INFORMATION
  Report Type: 
  Country: None (occurrence: None)
  Receive Date: 20060425
  Receipt Date: 20060411
  Transmission Date: 20061013
  Serious: Yes (Other)
  Sender: FDA-Public Use
  Company Number: CH-GLAXOSMITHKLINE-B0421126A

PATIENT
  Sex: Female

DRUGS (4)
  1. LAMICTAL [Suspect]
     Indication: EPILEPSY
     Dosage: 100MG PER DAY
     Route: 048
     Dates: start: 20050301, end: 20050901
  2. SINGULAIR [Concomitant]
     Indication: ASTHMA
  3. SYMBICORT [Concomitant]
     Indication: ASTHMA
  4. ORFIRIL LONG [Concomitant]
     Dosage: 300MG SINGLE DOSE

REACTIONS (1)
  - CHORIORETINITIS [None]
